FAERS Safety Report 5557368-2 (Version None)
Quarter: 2007Q4

REPORT INFORMATION
  Report Type: 
  Country: None (occurrence: None)
  Receive Date: 20071214
  Receipt Date: 20071129
  Transmission Date: 20080405
  Serious: Yes (Hospitalization)
  Sender: FDA-Public Use
  Company Number: JP-BAYER-JP-2007-039627

PATIENT
  Age: 46 Year
  Sex: Female

DRUGS (5)
  1. FLUDARA [Suspect]
     Indication: ALLOGENIC BONE MARROW TRANSPLANTATION THERAPY
     Dosage: TOTAL DAILY DOSE: 28 MG
     Route: 042
     Dates: start: 20061207, end: 20061210
  2. ALEMTUZUMAB [Concomitant]
     Indication: ALLOGENIC BONE MARROW TRANSPLANTATION THERAPY
     Dosage: TOTAL DAILY DOSE: 7 MG
     Route: 042
     Dates: start: 20061203, end: 20061208
  3. CYCLOPHOSPHAMIDE [Concomitant]
     Indication: ALLOGENIC BONE MARROW TRANSPLANTATION THERAPY
     Dosage: TOTAL DAILY DOSE: 1100 MG
     Route: 042
     Dates: start: 20061207, end: 20061210
  4. CYCLOSPORINE [Concomitant]
     Indication: PROPHYLAXIS AGAINST GRAFT VERSUS HOST DISEASE
     Dosage: TOTAL DAILY DOSE: 140 MG
     Route: 042
     Dates: start: 20061212, end: 20070322
  5. MTX [Concomitant]
     Indication: PROPHYLAXIS AGAINST GRAFT VERSUS HOST DISEASE
     Dosage: TOTAL DAILY DOSE: 16 MG
     Route: 065
     Dates: start: 20061214, end: 20061219

REACTIONS (2)
  - PROTEINURIA [None]
  - THROMBOTIC MICROANGIOPATHY [None]
